FAERS Safety Report 6667168-8 (Version None)
Quarter: 2010Q2

REPORT INFORMATION
  Report Type: 
  Country: None (occurrence: None)
  Receive Date: 20100401
  Receipt Date: 20100401
  Transmission Date: 20101027
  Serious: Yes (Other)
  Sender: FDA-Public Use
  Company Number: None

PATIENT
  Age: 40 Year
  Sex: Female
  Weight: 83.0083 kg

DRUGS (2)
  1. BENZONATATE [Suspect]
     Indication: BRONCHITIS
     Dosage: 200 MG 3X PER DAY PO
     Route: 048
     Dates: start: 20100324, end: 20100326
  2. BENZONATATE [Suspect]
     Indication: PNEUMONIA
     Dosage: 200 MG 3X PER DAY PO
     Route: 048
     Dates: start: 20100324, end: 20100326

REACTIONS (5)
  - DISSOCIATION [None]
  - DIZZINESS [None]
  - FEAR [None]
  - FEELING ABNORMAL [None]
  - SOMNOLENCE [None]
